FAERS Safety Report 9481896 (Version 1)
Quarter: 2013Q3

REPORT INFORMATION
  Report Type: Spontaneous
  Country: US (occurrence: US)
  Receive Date: 20130828
  Receipt Date: 20130828
  Transmission Date: 20140515
  Serious: Yes (Hospitalization)
  Sender: FDA-Public Use
  Company Number: US-ASTRAZENECA-2013SE64410

PATIENT
  Age: 55 Year
  Sex: Male
  Weight: 69 kg

DRUGS (5)
  1. ZESTRIL [Suspect]
     Indication: HYPERTENSION
     Route: 048
     Dates: start: 20120131, end: 2012
  2. BLINDED STUDY DRUG ORITAVANCIN [Suspect]
     Indication: SKIN BACTERIAL INFECTION
     Dosage: 14 DOSES
     Route: 042
     Dates: start: 20120131, end: 20120207
  3. OXYCODONE [Concomitant]
     Dates: start: 20120131, end: 20120209
  4. HYDROCHLOROTHIAZIDE [Concomitant]
     Dates: start: 20120131
  5. ROCEPHIN [Concomitant]
     Dates: start: 20120130, end: 20120130

REACTIONS (1)
  - Angioedema [Recovered/Resolved]
